FAERS Safety Report 6962812-X (Version None)
Quarter: 2010Q3

REPORT INFORMATION
  Report Type: 
  Country: None (occurrence: None)
  Receive Date: 20100902
  Receipt Date: 20100823
  Transmission Date: 20110219
  Serious: Yes (Other)
  Sender: FDA-Public Use
  Company Number: US-JNJCH-2010017911

PATIENT
  Sex: Female
  Weight: 63.5 kg

DRUGS (2)
  1. VISINE-A [Suspect]
     Indication: EYE PRURITUS
     Dosage: TEXT:3 DROPS IN RIGHT EYE FIRST TIME-FREQ:USED ONCE AND THEN AGAIN 2 WEEKS LATER
     Route: 047
  2. VISINE-A [Suspect]
     Dosage: TEXT:^MAYBE^ 20 MICRO LITERS-FREQ:2 WEEKS LATER AFTER INITIAL APPLICATION
     Route: 047

REACTIONS (9)
  - APPLICATION SITE PAIN [None]
  - APPLICATION SITE SWELLING [None]
  - BLEPHAROSPASM [None]
  - BLISTER [None]
  - EYE DISCHARGE [None]
  - EYE HAEMORRHAGE [None]
  - EYELID DISORDER [None]
  - IMPAIRED DRIVING ABILITY [None]
  - INCORRECT DOSE ADMINISTERED [None]
